FAERS Safety Report 7153761-5 (Version None)
Quarter: 2010Q4

REPORT INFORMATION
  Report Type: 
  Country: None (occurrence: None)
  Receive Date: 20101213
  Receipt Date: 20091230
  Transmission Date: 20110411
  Serious: No
  Sender: FDA-Public Use
  Company Number: US-ABBOTT-09P-163-0612499-00

PATIENT
  Sex: Female
  Weight: 80.812 kg

DRUGS (2)
  1. MERIDIA [Suspect]
     Indication: WEIGHT CONTROL
     Dates: start: 20090206, end: 20090301
  2. LORTAB [Concomitant]
     Indication: SPINAL OSTEOARTHRITIS

REACTIONS (1)
  - DRUG INEFFECTIVE [None]
